FAERS Safety Report 4646924-1 (Version None)
Quarter: 2005Q2

REPORT INFORMATION
  Report Type: 
  Country: None (occurrence: None)
  Receive Date: 20050331
  Receipt Date: 20050215
  Transmission Date: 20051028
  Serious: No
  Sender: FDA-Public Use
  Company Number: 05P-163-0290769-00

PATIENT
  Age: 68 Year
  Sex: Female
  Weight: 49.4421 kg

DRUGS (6)
  1. HUMIRA [Suspect]
     Indication: RHEUMATOID ARTHRITIS
     Dosage: 40 MG, 1 IN 2 WK, SUBCUTANEOUS
     Route: 058
     Dates: start: 20030101
  2. METHOTREXATE SODIUM [Concomitant]
  3. MULTI-VITAMINS [Concomitant]
  4. FOLIC ACID [Concomitant]
  5. CALCIUM D [Concomitant]
  6. PARACETAMOL [Concomitant]

REACTIONS (3)
  - ASTHENIA [None]
  - INJECTION SITE PAIN [None]
  - WEIGHT DECREASED [None]
